FAERS Safety Report 4288051-1 (Version None)
Quarter: 2004Q1

REPORT INFORMATION
  Report Type: 
  Country: None (occurrence: None)
  Receive Date: 20040205
  Receipt Date: 20040116
  Transmission Date: 20041129
  Serious: Yes (Hospitalization)
  Sender: FDA-Public Use
  Company Number: EWC040137565

PATIENT
  Age: 49 Year
  Sex: Male
  Weight: 58 kg

DRUGS (4)
  1. GEMCITABINE HYDROCHLORIDE-IV (GEMCITABINE) [Suspect]
     Indication: BLADDER CANCER STAGE IV
     Dosage: 1000 MG/M2/3 OTHER
     Route: 050
     Dates: start: 20030725
  2. CISPLATIN [Suspect]
     Indication: BLADDER CANCER STAGE IV
     Dosage: 70 MG/M2/1  OTHER
     Route: 050
     Dates: start: 20030725
  3. NITROFURANTOIN [Concomitant]
  4. VITAMIN B COMPLEX CAP [Concomitant]

REACTIONS (6)
  - BLOOD CREATINE INCREASED [None]
  - KLEBSIELLA INFECTION [None]
  - PNEUMONITIS [None]
  - PSEUDOMONAS INFECTION [None]
  - URINARY TRACT INFECTION [None]
  - VESICOURETERIC REFLUX [None]
